FAERS Safety Report 23103193 (Version 3)
Quarter: 2025Q4

REPORT INFORMATION
  Report Type: Spontaneous
  Country: US (occurrence: US)
  Receive Date: 20231025
  Receipt Date: 20251226
  Transmission Date: 20260118
  Serious: Yes (Hospitalization, Other)
  Sender: PFIZER
  Company Number: US-PFIZER INC-PV202300172708

PATIENT
  Age: 16 Year
  Sex: Male

DRUGS (6)
  1. METHOTREXATE [Interacting]
     Active Substance: METHOTREXATE
     Indication: B-cell type acute leukaemia
     Dosage: UNK (STANDARD DOSES)
  2. VINCRISTINE SULFATE [Suspect]
     Active Substance: VINCRISTINE SULFATE
     Indication: B-cell type acute leukaemia
     Dosage: UNK (STANDARD DOSES)
  3. MERCAPTOPURINE [Interacting]
     Active Substance: MERCAPTOPURINE
     Indication: B-cell type acute leukaemia
     Dosage: UNK
  4. MERCAPTOPURINE [Interacting]
     Active Substance: MERCAPTOPURINE
     Dosage: 37.5 MG/M2, DAILY, DECREASED BY 50%
  5. PREDNISONE [Suspect]
     Active Substance: PREDNISONE
     Indication: B-cell type acute leukaemia
     Dosage: UNK (STANDARD DOSES)
  6. ALLOPURINOL [Suspect]
     Active Substance: ALLOPURINOL
     Indication: B-cell type acute leukaemia
     Dosage: 100 MG, DAILY (50 MG/M2 ROUNDED TO THE NEAREST 25 MG)

REACTIONS (5)
  - Hyperbilirubinaemia [Unknown]
  - Hypertransaminasaemia [Unknown]
  - Ocular icterus [Unknown]
  - Anaemia megaloblastic [Unknown]
  - Drug interaction [Unknown]
